FAERS Safety Report 4602008-X (Version None)
Quarter: 2005Q1

REPORT INFORMATION
  Report Type: 
  Country: None (occurrence: None)
  Receive Date: 20050201
  Receipt Date: 20040312
  Transmission Date: 20050727
  Serious: Yes (Hospitalization)
  Sender: FDA-Public Use
  Company Number: 200415401BWH

PATIENT
  Age: 78 Year
  Sex: Female

DRUGS (7)
  1. AVELOX [Suspect]
     Indication: UPPER RESPIRATORY TRACT INFECTION
     Dosage: 400 MG, QD, ORAL
     Route: 048
     Dates: start: 20040303, end: 20040305
  2. PREDNISONE [Suspect]
     Indication: UPPER RESPIRATORY TRACT INFECTION
     Dates: start: 20040303
  3. PROTONIX [Concomitant]
  4. LASIX [Concomitant]
  5. LISINOPRIL [Concomitant]
  6. AZMACORT [Concomitant]
  7. COMBIVENT [Concomitant]

REACTIONS (3)
  - CHEST PAIN [None]
  - DYSPNOEA [None]
  - NERVOUSNESS [None]
